FAERS Safety Report 8453938-2 (Version None)
Quarter: 2012Q2

REPORT INFORMATION
  Report Type: 
  Country: None (occurrence: None)
  Receive Date: 20120620
  Receipt Date: 20120606
  Transmission Date: 20120825
  Serious: Yes (Other)
  Sender: FDA-Public Use
  Company Number: JP-PFIZER INC-2012146310

PATIENT
  Age: 42 Year
  Sex: Male

DRUGS (4)
  1. OLOPATADINE HCL [Concomitant]
     Dosage: UNK
     Dates: start: 20120412
  2. LIPITOR [Suspect]
     Indication: DYSLIPIDAEMIA
     Dosage: 5 MG, UNKNOWN/D
     Route: 048
     Dates: start: 20120412
  3. DIOVAN [Concomitant]
     Dosage: UNK
     Dates: start: 20120412
  4. ALLEGRA [Concomitant]
     Dosage: UNK
     Dates: start: 20120412

REACTIONS (1)
  - RENAL IMPAIRMENT [None]
